FAERS Safety Report 6307339-3 (Version None)
Quarter: 2009Q3

REPORT INFORMATION
  Report Type: 
  Country: None (occurrence: None)
  Receive Date: 20090807
  Receipt Date: 20090601
  Transmission Date: 20100115
  Serious: Yes (Other)
  Sender: FDA-Public Use
  Company Number: US-JNJFOC-20090600980

PATIENT
  Age: 11 Year
  Sex: Male

DRUGS (2)
  1. IBUPROFEN [Suspect]
     Indication: PYREXIA
     Dosage: 50 MG , 1 IN 1 TOTAL ORAL
     Route: 048
     Dates: start: 20090201, end: 20090201
  2. AMOXICILLIN [Concomitant]

REACTIONS (2)
  - SKIN DISCOLOURATION [None]
  - SWELLING FACE [None]
